FAERS Safety Report 5742618-X (Version None)
Quarter: 2008Q2

REPORT INFORMATION
  Report Type: 
  Country: None (occurrence: None)
  Receive Date: 20080519
  Receipt Date: 20080509
  Transmission Date: 20081010
  Serious: Yes (Other)
  Sender: FDA-Public Use
  Company Number: US-AVENTIS-200811894US

PATIENT
  Age: 70 Year
  Sex: Male
  Weight: 118.17 kg

DRUGS (7)
  1. LOVENOX [Suspect]
     Route: 051
     Dates: start: 20080307, end: 20080301
  2. LOVENOX [Suspect]
     Route: 051
     Dates: start: 20080301
  3. COUMADIN [Concomitant]
  4. COUMADIN [Concomitant]
  5. COUMADIN [Concomitant]
  6. COUMADIN [Concomitant]
  7. LANTUS [Concomitant]
     Dosage: DOSE: UNK
     Dates: start: 20080313

REACTIONS (10)
  - CONTUSION [None]
  - EAR DISORDER [None]
  - HAEMORRHAGE [None]
  - HEADACHE [None]
  - INTERNATIONAL NORMALISED RATIO INCREASED [None]
  - MALAISE [None]
  - NAUSEA [None]
  - PYREXIA [None]
  - SCAB [None]
  - VOMITING [None]
